FAERS Safety Report 4287963-2 (Version None)
Quarter: 2004Q1

REPORT INFORMATION
  Report Type: 
  Country: None (occurrence: None)
  Receive Date: 20040209
  Receipt Date: 20031106
  Transmission Date: 20041129
  Serious: No
  Sender: FDA-Public Use
  Company Number: US-GLAXOSMITHKLINE-A0433305A

PATIENT
  Age: 15 Year
  Sex: Female

DRUGS (1)
  1. PAXIL [Suspect]
     Indication: PANIC DISORDER
     Dosage: 37.5MG PER DAY
     Route: 048
     Dates: start: 20020301

REACTIONS (1)
  - OLIGOMENORRHOEA [None]
